FAERS Safety Report 17987420 (Version 1)
Quarter: 2020Q3

REPORT INFORMATION
  Report Type: Spontaneous
  Country: GB (occurrence: GB)
  Receive Date: 20200707
  Receipt Date: 20200707
  Transmission Date: 20201103
  Serious: Yes (Disabling)
  Sender: FDA-Public Use
  Company Number: GB-TEVA-2020-GB-1797137

PATIENT
  Age: 33 Year
  Sex: Male

DRUGS (1)
  1. CIPROFLOXACIN. [Suspect]
     Active Substance: CIPROFLOXACIN
     Dosage: 3 DF
     Route: 048
     Dates: start: 2014

REACTIONS (2)
  - Tendon pain [Not Recovered/Not Resolved]
  - Tendon disorder [Unknown]

NARRATIVE: CASE EVENT DATE: 2014
